FAERS Safety Report 7020175-8 (Version None)
Quarter: 2010Q3

REPORT INFORMATION
  Report Type: 
  Country: None (occurrence: None)
  Receive Date: 20100927
  Receipt Date: 20100921
  Transmission Date: 20110219
  Serious: Yes (Death, Hospitalization)
  Sender: FDA-Public Use
  Company Number: 1000016374

PATIENT
  Age: 68 Year
  Sex: Female
  Weight: 90.7 kg

DRUGS (10)
  1. LEXAPRO [Suspect]
     Indication: BIPOLAR DISORDER
     Dosage: 30 MG (30 MG,1 IN 1 D)
     Dates: start: 20090204, end: 20100628
  2. LEXAPRO [Suspect]
     Indication: MAJOR DEPRESSION
     Dosage: 30 MG (30 MG,1 IN 1 D)
     Dates: start: 20090204, end: 20100628
  3. GEODON [Suspect]
     Indication: ANXIETY
     Dosage: 20 MG (20 MG,1 IN 1 D),ORAL ; 160 MG (2 IN 1 D),ORAL
     Route: 048
     Dates: start: 20100301, end: 20100628
  4. GEODON [Suspect]
     Indication: BIPOLAR DISORDER
     Dosage: 20 MG (20 MG,1 IN 1 D),ORAL ; 160 MG (2 IN 1 D),ORAL
     Route: 048
     Dates: start: 20100301, end: 20100628
  5. GEODON [Suspect]
     Indication: MAJOR DEPRESSION
     Dosage: 20 MG (20 MG,1 IN 1 D),ORAL ; 160 MG (2 IN 1 D),ORAL
     Route: 048
     Dates: start: 20100301, end: 20100628
  6. GEODON [Suspect]
     Indication: ANXIETY
     Dosage: 20 MG (20 MG,1 IN 1 D),ORAL ; 160 MG (2 IN 1 D),ORAL
     Route: 048
     Dates: start: 20100401
  7. GEODON [Suspect]
     Indication: BIPOLAR DISORDER
     Dosage: 20 MG (20 MG,1 IN 1 D),ORAL ; 160 MG (2 IN 1 D),ORAL
     Route: 048
     Dates: start: 20100401
  8. GEODON [Suspect]
     Indication: MAJOR DEPRESSION
     Dosage: 20 MG (20 MG,1 IN 1 D),ORAL ; 160 MG (2 IN 1 D),ORAL
     Route: 048
     Dates: start: 20100401
  9. NORTRIPTYLINE HCL [Concomitant]
  10. XANAX [Concomitant]

REACTIONS (9)
  - COMPLETED SUICIDE [None]
  - GUN SHOT WOUND [None]
  - HERPES ZOSTER [None]
  - INTENTIONAL SELF-INJURY [None]
  - NERVOUSNESS [None]
  - OVERDOSE [None]
  - TONGUE DISORDER [None]
  - TRISMUS [None]
  - UNEVALUABLE EVENT [None]
